FAERS Safety Report 18036223 (Version 1)
Quarter: 2020Q3

REPORT INFORMATION
  Report Type: Spontaneous
  Country: US (occurrence: US)
  Receive Date: 20200716
  Receipt Date: 20200716
  Transmission Date: 20201103
  Serious: No
  Sender: FDA-Public Use
  Company Number: None

PATIENT
  Age: 34 Year
  Sex: Male

DRUGS (1)
  1. DEXTROSE/PENICILLIN (PENICILLIN G K 40000UNT/ML/DEXTROSE 5% INJ) ? [Suspect]
     Active Substance: PENICILLIN G POTASSIUM
     Indication: SYPHILIS
     Dosage: ?          OTHER STRENGTH:40000UNT/ML, 5%;OTHER DOSE:4 MILLION UNITS;?
     Route: 042
     Dates: start: 20190215, end: 20190220

REACTIONS (3)
  - Seizure [None]
  - Acute kidney injury [None]
  - Lethargy [None]

NARRATIVE: CASE EVENT DATE: 20190220
